FAERS Safety Report 5630774-3 (Version None)
Quarter: 2008Q1

REPORT INFORMATION
  Report Type: 
  Country: None (occurrence: None)
  Receive Date: 20080212
  Receipt Date: 20080204
  Transmission Date: 20080703
  Serious: Yes (Death)
  Sender: FDA-Public Use
  Company Number: 2008-00926

PATIENT
  Age: 42 Year
  Sex: Male

DRUGS (6)
  1. DIPHENHYDRAMINE HCL [Suspect]
  2. GUANFACINE (WATSON LABORATORIES)(GUANFACINE) TABLET [Suspect]
  3. VALPROIC ACID [Suspect]
  4. PHENERGAN [Suspect]
  5. VENLAFAXINE HCL [Suspect]
  6. LAMOTRIGINE [Suspect]

REACTIONS (1)
  - DEATH [None]
